FAERS Safety Report 4528608-3 (Version None)
Quarter: 2004Q4

REPORT INFORMATION
  Report Type: 
  Country: None (occurrence: None)
  Receive Date: 20041216
  Receipt Date: 20041201
  Transmission Date: 20050328
  Serious: Yes (Other)
  Sender: FDA-Public Use
  Company Number: JP-JNJFOC-20041202819

PATIENT
  Sex: Female

DRUGS (1)
  1. ITRIZOLE [Suspect]
     Indication: FUNGAL INFECTION
     Route: 049

REACTIONS (5)
  - DEAFNESS NEUROSENSORY [None]
  - DIZZINESS [None]
  - HEADACHE [None]
  - TINNITUS [None]
  - VERTIGO [None]
